FAERS Safety Report 9240889 (Version 1)
Quarter: 2013Q2

REPORT INFORMATION
  Report Type: Spontaneous
  Country: US (occurrence: US)
  Receive Date: 20130419
  Receipt Date: 20130419
  Transmission Date: 20140414
  Serious: No
  Sender: FDA-Public Use
  Company Number: US-SANOFI-AVENTIS-2013SA022415

PATIENT
  Sex: Female
  Weight: 210 kg

DRUGS (2)
  1. LOVENOX [Suspect]
     Route: 051
     Dates: start: 20130220
  2. COUMADIN [Concomitant]
     Dates: start: 20130220

REACTIONS (1)
  - Anticoagulation drug level below therapeutic [Not Recovered/Not Resolved]
